FAERS Safety Report 10151814 (Version 1)
Quarter: 2014Q2

REPORT INFORMATION
  Report Type: Spontaneous
  Country: ES (occurrence: ES)
  Receive Date: 20140505
  Receipt Date: 20140505
  Transmission Date: 20141212
  Serious: Yes (Other)
  Sender: FDA-Public Use
  Company Number: ES-AMGEN INC.-ESPSP2014032326

PATIENT
  Age: 61 Year
  Sex: Female

DRUGS (1)
  1. ENBREL [Suspect]
     Indication: RHEUMATOID ARTHRITIS
     Dosage: 50 MG, WEEKLY (ON WEDNESDAYS)
     Route: 065
     Dates: start: 20140305

REACTIONS (8)
  - Blood pressure increased [Unknown]
  - Fear of injection [Unknown]
  - Pain in extremity [Unknown]
  - Erythema [Unknown]
  - Sensory loss [Unknown]
  - Feeling hot [Unknown]
  - Gait disturbance [Unknown]
  - Pruritus [Unknown]
